FAERS Safety Report 4524643-X (Version None)
Quarter: 2004Q4

REPORT INFORMATION
  Report Type: 
  Country: None (occurrence: None)
  Receive Date: 20041117
  Receipt Date: 20030903
  Transmission Date: 20050328
  Serious: Yes (Other)
  Sender: FDA-Public Use
  Company Number: C2003-2240.01

PATIENT
  Age: 42 Year
  Sex: Male

DRUGS (12)
  1. PROVIGIL [Suspect]
     Indication: SEDATION
     Dosage: 100MG QD, THEN 300MG QD, ORAL
     Route: 048
  2. CLOZAPINE [Suspect]
     Indication: SCHIZOPHRENIA
     Dosage: 25MG QHS AND TITRATED, ORAL
     Route: 048
  3. CLOZAPINE [Suspect]
     Indication: SCHIZOPHRENIA
     Dosage: 100MG QD, TITRATED TO 400MG QD, THEN 450 MG QD, THEN 100MG QD, THEN 300 MG QD, ORAL
     Route: 048
  4. HALOPERIDOL [Concomitant]
  5. QUETIAPINE [Concomitant]
  6. DIVALPROEX SODIUM [Concomitant]
  7. BENZTROPINE MESYLATE [Concomitant]
  8. LORAZEPAM [Concomitant]
  9. LEVOTHYROXINE SODIUM [Concomitant]
  10. FUROSEMIDE [Concomitant]
  11. POTASSIUM [Concomitant]
  12. DOCUSATE SODIUM [Concomitant]

REACTIONS (5)
  - DIZZINESS [None]
  - DRUG INTERACTION [None]
  - FALL [None]
  - GAIT DISTURBANCE [None]
  - HYPOXIA [None]
